FAERS Safety Report 4874510-7 (Version None)
Quarter: 2006Q1

REPORT INFORMATION
  Report Type: 
  Country: None (occurrence: None)
  Receive Date: 20060106
  Receipt Date: 20051209
  Transmission Date: 20060701
  Serious: Yes (Life-Threatening, Hospitalization)
  Sender: FDA-Public Use
  Company Number: SEWYE236615DEC05

PATIENT
  Sex: Female

DRUGS (4)
  1. ENBREL [Suspect]
     Indication: RHEUMATOID ARTHRITIS
     Route: 058
     Dates: start: 20031201, end: 20041201
  2. METFORMIN [Suspect]
     Route: 048
  3. PREDNISOLONE [Concomitant]
     Indication: ARTHRITIS
     Route: 048
  4. CALCIGRAN [Concomitant]
     Indication: OSTEOPOROSIS PROPHYLAXIS
     Route: 048

REACTIONS (10)
  - ACUTE RESPIRATORY DISTRESS SYNDROME [None]
  - CANDIDIASIS [None]
  - CARDIAC TAMPONADE [None]
  - DRUG INTERACTION [None]
  - LUPUS-LIKE SYNDROME [None]
  - PERICARDITIS [None]
  - PLEURISY [None]
  - RENAL FAILURE [None]
  - SEPSIS [None]
  - THROMBOPHLEBITIS [None]
